FAERS Safety Report 19078365 (Version 1)
Quarter: 2021Q1

REPORT INFORMATION
  Report Type: Report from Study
  Country: CA (occurrence: CA)
  Receive Date: 20210331
  Receipt Date: 20210331
  Transmission Date: 20210420
  Serious: Yes (Other)
  Sender: FDA-Public Use
  Company Number: CA-TAKEDA-2021TUS013802

PATIENT
  Age: 84 Year
  Sex: Male

DRUGS (3)
  1. HUMIRA [Concomitant]
     Active Substance: ADALIMUMAB
     Dosage: 40 MILLIGRAM
     Dates: start: 202002
  2. VEDOLIZUMAB [Suspect]
     Active Substance: VEDOLIZUMAB
     Indication: COLITIS ULCERATIVE
     Dosage: 300 MILLIGRAM
     Route: 042
     Dates: start: 20201124
  3. VEDOLIZUMAB [Suspect]
     Active Substance: VEDOLIZUMAB
     Dosage: 300 MILLIGRAM
     Route: 042

REACTIONS (2)
  - Diarrhoea [Unknown]
  - Colitis ulcerative [Unknown]
